FAERS Safety Report 16187114 (Version 1)
Quarter: 2019Q2

REPORT INFORMATION
  Report Type: Spontaneous
  Country: FR (occurrence: FR)
  Receive Date: 20190411
  Receipt Date: 20190411
  Transmission Date: 20190711
  Serious: Yes (Death)
  Sender: FDA-Public Use
  Company Number: FR-009507513-1904FRA004535

PATIENT
  Age: 65 Year
  Sex: Female
  Weight: 92 kg

DRUGS (9)
  1. LEVOTHYROX [Suspect]
     Active Substance: LEVOTHYROXINE
     Indication: HYPOTHYROIDISM
     Dosage: 1 DOSAGE FORM, QD
     Route: 048
     Dates: end: 20190303
  2. LERCANIDIPINE [Suspect]
     Active Substance: LERCANIDIPINE
     Indication: HYPERTENSION
     Dosage: 1 DOSAGE FORM, QD; FORMULATION: SCORED FILM COATED TABLET
     Route: 048
     Dates: end: 20190226
  3. ONDANSETRON [Suspect]
     Active Substance: ONDANSETRON
     Indication: ANTIEMETIC SUPPORTIVE CARE
     Dosage: 2 DOSAGE FORM, QD
     Route: 042
     Dates: start: 20190226, end: 20190227
  4. CHIBRO-CADRON [Suspect]
     Active Substance: DEXAMETHASONE\NEOMYCIN SULFATE
     Indication: PRODUCT USED FOR UNKNOWN INDICATION
     Dosage: 1 GTT DROPS, QD
     Route: 047
     Dates: start: 20190225, end: 20190227
  5. EMEND [Suspect]
     Active Substance: APREPITANT
     Indication: ANTIEMETIC SUPPORTIVE CARE
     Dosage: 125MG J1, THEN 80MG
     Route: 048
     Dates: start: 20190225, end: 20190227
  6. EVOLTRA [Suspect]
     Active Substance: CLOFARABINE
     Indication: BONE MARROW TRANSPLANT
     Dosage: 60 MILLIGRAM, QD; FORMULATION: SOLUTION TO DILUTE FOR INFUSION
     Route: 042
     Dates: start: 20190225, end: 20190301
  7. STRESAM [Suspect]
     Active Substance: ETIFOXINE
     Indication: ANXIETY
     Dosage: 2 DOSAGE FORM, QD
     Route: 048
     Dates: end: 20190227
  8. CYTARABINE. [Suspect]
     Active Substance: CYTARABINE
     Indication: BONE MARROW TRANSPLANT
     Dosage: 2000 MILLIGRAM, QD
     Route: 042
     Dates: start: 20190225, end: 20190301
  9. VORICONAZOLE. [Suspect]
     Active Substance: VORICONAZOLE
     Indication: ANTIBIOTIC PROPHYLAXIS
     Dosage: 720 MILLIGRAM, QD
     Route: 042
     Dates: start: 20190226, end: 20190306

REACTIONS (2)
  - Bone marrow failure [Fatal]
  - Septic shock [Fatal]

NARRATIVE: CASE EVENT DATE: 20190227
